FAERS Safety Report 24123783 (Version 1)
Quarter: 2024Q3

REPORT INFORMATION
  Report Type: Spontaneous
  Country: US (occurrence: US)
  Receive Date: 20240723
  Receipt Date: 20240723
  Transmission Date: 20241016
  Serious: No
  Sender: OTSUKA
  Company Number: US-OTSUKA-2024_015843

PATIENT
  Age: 95 Year
  Sex: Female

DRUGS (1)
  1. REXULTI [Suspect]
     Active Substance: BREXPIPRAZOLE
     Indication: Dermatillomania
     Dosage: 0.5 MG
     Route: 065

REACTIONS (5)
  - Abnormal behaviour [Unknown]
  - Skin abrasion [Unknown]
  - Somnolence [Unknown]
  - Product use in unapproved indication [Unknown]
  - Inability to afford medication [Unknown]
